FAERS Safety Report 10286789 (Version 1)
Quarter: 2014Q3

REPORT INFORMATION
  Report Type: Spontaneous
  Country: US (occurrence: None)
  Receive Date: 20140707
  Receipt Date: 20140707
  Transmission Date: 20150326
  Serious: Yes (Other)
  Sender: FDA-Public Use
  Company Number: None

PATIENT
  Age: 61 Year
  Sex: Male

DRUGS (1)
  1. RIBAVIRIN CAPSULE 200MG ZYDUS [Suspect]
     Active Substance: RIBAVIRIN
     Indication: HEPATITIS C
     Route: 048
     Dates: start: 20140417, end: 20140508

REACTIONS (5)
  - Headache [None]
  - Dyspnoea [None]
  - Heart rate increased [None]
  - Blood pressure increased [None]
  - Haemoglobin decreased [None]

NARRATIVE: CASE EVENT DATE: 20140419
